FAERS Safety Report 4534591-7 (Version None)
Quarter: 2004Q4

REPORT INFORMATION
  Report Type: 
  Country: None (occurrence: None)
  Receive Date: 20041214
  Receipt Date: 20041028
  Transmission Date: 20050328
  Serious: Yes (Other)
  Sender: FDA-Public Use
  Company Number: 2004241895US

PATIENT
  Sex: Female

DRUGS (5)
  1. BEXTRA [Suspect]
     Indication: ARTHRITIS
     Dates: start: 20040101, end: 20040101
  2. INSULIN [Concomitant]
  3. ACTOS [Concomitant]
  4. GLUCOTROL XL [Concomitant]
  5. TYLENOL [Concomitant]

REACTIONS (1)
  - MITRAL VALVE PROLAPSE [None]
